FAERS Safety Report 14778427 (Version 2)
Quarter: 2018Q3

REPORT INFORMATION
  Report Type: Spontaneous
  Country: US (occurrence: US)
  Receive Date: 20180419
  Receipt Date: 20180730
  Transmission Date: 20181010
  Serious: No
  Sender: FDA-Public Use
  Company Number: US-VERTEX PHARMACEUTICALS-2018-002543

PATIENT
  Age: 19 Year
  Sex: Male

DRUGS (12)
  1. ORKAMBI [Suspect]
     Active Substance: IVACAFTOR\LUMACAFTOR
     Indication: CYSTIC FIBROSIS
     Dosage: 200/125 MG TABLETS (FREQUENCY UNSPECIFIED)
     Route: 048
  2. BISACODYL. [Concomitant]
     Active Substance: BISACODYL
     Dosage: UNK
     Dates: start: 20180301
  3. HUMALOG [Concomitant]
     Active Substance: INSULIN LISPRO
     Dosage: UNK
     Dates: start: 20170716
  4. COMPLETE D3000 [Concomitant]
     Dosage: UNK
     Dates: start: 20180327
  5. PERTZYE [Concomitant]
     Active Substance: PANCRELIPASE AMYLASE\PANCRELIPASE LIPASE\PANCRELIPASE PROTEASE
     Dosage: UNK
     Dates: start: 20180328
  6. LORATADINE. [Concomitant]
     Active Substance: LORATADINE
     Dosage: UNK
     Dates: start: 20171130
  7. ORKAMBI [Suspect]
     Active Substance: IVACAFTOR\LUMACAFTOR
     Dosage: 2 TABLETS (200/125 MG), BID
     Route: 048
     Dates: start: 20180125
  8. PANTOPRAZOLE [Concomitant]
     Active Substance: PANTOPRAZOLE
     Dosage: UNK
     Dates: start: 20180412
  9. AZITHROMYCIN ANHYDROUS. [Concomitant]
     Active Substance: AZITHROMYCIN ANHYDROUS
     Dosage: UNK
     Dates: start: 20180319
  10. VITAMIN D [Concomitant]
     Active Substance: CHOLECALCIFEROL
     Dosage: UNK
     Dates: start: 20170825
  11. MOMETASONE [Concomitant]
     Active Substance: MOMETASONE
     Dosage: UNK
     Dates: start: 20180301
  12. URSODIOL. [Concomitant]
     Active Substance: URSODIOL
     Dosage: UNK
     Dates: start: 20171120

REACTIONS (2)
  - Malaise [Unknown]
  - Hypersomnia [Unknown]

NARRATIVE: CASE EVENT DATE: 201804
